FAERS Safety Report 20778525 (Version 1)
Quarter: 2022Q2

REPORT INFORMATION
  Report Type: Spontaneous
  Country: US (occurrence: US)
  Receive Date: 20220503
  Receipt Date: 20220503
  Transmission Date: 20220720
  Serious: No
  Sender: FDA-Public Use
  Company Number: US-AMNEAL PHARMACEUTICALS-2021-AMRX-02783

PATIENT
  Sex: Female

DRUGS (5)
  1. VIGABATRIN [Suspect]
     Active Substance: VIGABATRIN
     Indication: Epilepsy
     Dosage: 5 MILLILITER, 2 /DAY, WEEK 1, 5ML FOR 1, 2/DAY, WEEK
     Route: 048
  2. VIGABATRIN [Suspect]
     Active Substance: VIGABATRIN
     Dosage: 750 MILLIGRAM, QD, 250MG (5ML) EVERY MORNING AND 500MG (10ML) EVERY EVENING FOR WEEK 2
     Route: 048
  3. VIGABATRIN [Suspect]
     Active Substance: VIGABATRIN
     Dosage: 500 MILLIGRAM, 2 /DAY, 10ML 2/DAY FOR WEEK 3
     Route: 048
  4. VIGABATRIN [Suspect]
     Active Substance: VIGABATRIN
     Dosage: 1250 MILLIGRAM, QD, 500MG (10ML) EVERY MORNING AND 750MG (15ML) EVERY EVENING FOR WEEK 4
     Route: 048
  5. VIGABATRIN [Suspect]
     Active Substance: VIGABATRIN
     Dosage: 750 MILLIGRAM, 2 /DAY, 15ML FOR WEEK 5 AND THEREAFTER
     Route: 048

REACTIONS (1)
  - Adverse drug reaction [Unknown]
